FAERS Safety Report 7140236 (Version 7)
Quarter: 2012Q4

REPORT INFORMATION
  Report Type: 
  Country: JP (occurrence: JP)
  Receive Date: 20091006
  Receipt Date: 20121008
  Transmission Date: 20130627
  Serious: Yes (Death, Hospitalization, Other)
  Sender: FDA-Public Use
  Company Number: PHHO2009JP09940

PATIENT
  Age: 72 Year
  Sex: Male
  Weight: 48 kg

DRUGS (8)
  1. PLACEBO [Suspect]
     Indication: PANCREATIC NEUROENDOCRINE TUMOUR
     Dosage: Placebo
     Route: 048
     Dates: start: 20090403
  2. RAD 666 / RAD 001A [Suspect]
     Indication: PANCREATIC NEUROENDOCRINE TUMOUR
     Dosage: 10 mg
     Route: 048
     Dates: start: 20090704, end: 20090717
  3. RAD 666 / RAD 001A [Suspect]
     Dosage: 5 mg, QD
     Route: 048
     Dates: start: 20090724, end: 20090804
  4. RAD 666 / RAD 001A [Suspect]
     Dosage: 5 mg / day
     Route: 048
     Dates: start: 20090825, end: 20090923
  5. TIENAM [Suspect]
  6. BASEN [Concomitant]
     Indication: DIABETES MELLITUS
  7. AMARYL [Concomitant]
     Indication: DIABETES MELLITUS
     Dosage: UNK
  8. TAKEPRON [Concomitant]
     Indication: DUODENAL ULCER
     Dosage: UNK

REACTIONS (16)
  - Depressed level of consciousness [Recovering/Resolving]
  - Pneumonia bacterial [Recovered/Resolved]
  - Pyrexia [Recovered/Resolved]
  - White blood cell count increased [Recovered/Resolved]
  - C-reactive protein increased [Recovered/Resolved]
  - Asthenia [Recovering/Resolving]
  - Malignant neoplasm progression [Fatal]
  - Hepatic failure [Fatal]
  - Nausea [Fatal]
  - Decreased appetite [Fatal]
  - Hepatic encephalopathy [Fatal]
  - Somnolence [Fatal]
  - Diarrhoea [Unknown]
  - Platelet count decreased [Unknown]
  - Stomatitis [Unknown]
  - Hepatic enzyme increased [Unknown]
